FAERS Safety Report 6795932-3 (Version None)
Quarter: 2010Q2

REPORT INFORMATION
  Report Type: 
  Country: None (occurrence: None)
  Receive Date: 20100625
  Receipt Date: 20100616
  Transmission Date: 20101027
  Serious: Yes (Hospitalization)
  Sender: FDA-Public Use
  Company Number: B0660069A

PATIENT
  Sex: Male
  Weight: 66 kg

DRUGS (1)
  1. VALTREX [Suspect]
     Indication: HERPES ZOSTER
     Dosage: 1500MG PER DAY
     Route: 048
     Dates: start: 20100602

REACTIONS (3)
  - DYSURIA [None]
  - MALAISE [None]
  - RENAL FAILURE ACUTE [None]
